FAERS Safety Report 23022100 (Version 2)
Quarter: 2023Q4

REPORT INFORMATION
  Report Type: Spontaneous
  Country: FR (occurrence: FR)
  Receive Date: 20231003
  Receipt Date: 20231012
  Transmission Date: 20240110
  Serious: Yes (Other)
  Sender: FDA-Public Use
  Company Number: None

PATIENT
  Age: 50 Year
  Sex: Female

DRUGS (3)
  1. GEMCITABINE [Suspect]
     Active Substance: GEMCITABINE
     Indication: Cholangiocarcinoma
     Dosage: 1600 MILLIGRAM  (1 CYCLES) (6 CYCLES)
     Route: 042
     Dates: start: 20230308, end: 20230704
  2. CISPLATIN [Concomitant]
     Active Substance: CISPLATIN
     Indication: Cholangiocarcinoma
     Dosage: 1 DOSAGE FORM, 1 CYCLICAL (J1J8J22)
     Route: 042
     Dates: start: 20230308
  3. IMFINZI [Concomitant]
     Active Substance: DURVALUMAB
     Indication: Cholangiocarcinoma
     Dosage: 1 DOSAGE FORM, 1 CYCLICAL
     Route: 042
     Dates: start: 20230308

REACTIONS (3)
  - Hyperthyroidism [Not Recovered/Not Resolved]
  - Lichenoid keratosis [Not Recovered/Not Resolved]
  - Cutaneous lupus erythematosus [Recovering/Resolving]

NARRATIVE: CASE EVENT DATE: 20230627
